FAERS Safety Report 13911608 (Version 1)
Quarter: 2017Q3

REPORT INFORMATION
  Report Type: Spontaneous
  Country: US (occurrence: US)
  Receive Date: 20170828
  Receipt Date: 20170828
  Transmission Date: 20171127
  Serious: No
  Sender: FDA-Public Use
  Company Number: US-ROCHE-1143137

PATIENT
  Age: 14 Year
  Sex: Female
  Weight: 52.6 kg

DRUGS (4)
  1. ARGININE [Concomitant]
     Active Substance: ARGININE
  2. NUTROPIN AQ [Suspect]
     Active Substance: SOMATROPIN
     Route: 065
  3. L DOPA [Concomitant]
     Active Substance: LEVODOPA
  4. NUTROPIN AQ [Suspect]
     Active Substance: SOMATROPIN
     Indication: DWARFISM
     Route: 058

REACTIONS (2)
  - Influenza like illness [Unknown]
  - Otitis externa [Unknown]

NARRATIVE: CASE EVENT DATE: 199906
